FAERS Safety Report 9611772 (Version 1)
Quarter: 2013Q4

REPORT INFORMATION
  Report Type: Spontaneous
  Country: FR (occurrence: FR)
  Receive Date: 20131010
  Receipt Date: 20131010
  Transmission Date: 20140711
  Serious: Yes (Other)
  Sender: FDA-Public Use
  Company Number: FR-JNJFOC-20131002599

PATIENT
  Age: 57 Year
  Sex: Female

DRUGS (2)
  1. CAELYX (DOXORUBICIN HYDROCHLORIDE) [Suspect]
     Indication: MYCOSIS FUNGOIDES
     Dosage: COURSE 1; DAY 1 TO 15
     Route: 042
     Dates: start: 20130618, end: 20130705
  2. CAELYX (DOXORUBICIN HYDROCHLORIDE) [Suspect]
     Indication: MYCOSIS FUNGOIDES
     Dosage: COURSE 2; DAY 1 TO 15
     Route: 042
     Dates: start: 20130719, end: 20130802

REACTIONS (7)
  - Rash papular [Recovering/Resolving]
  - Mucosal inflammation [Recovering/Resolving]
  - Rash pustular [Recovering/Resolving]
  - Palmar-plantar erythrodysaesthesia syndrome [Recovering/Resolving]
  - Hand-foot-genital syndrome [Recovering/Resolving]
  - Off label use [Unknown]
  - Pruritus [Unknown]
